FAERS Safety Report 9248904 (Version 3)
Quarter: 2013Q3

REPORT INFORMATION
  Report Type: Spontaneous
  Country: US (occurrence: US)
  Receive Date: 20130423
  Receipt Date: 20130701
  Transmission Date: 20140515
  Serious: Yes (Hospitalization)
  Sender: FDA-Public Use
  Company Number: US-JNJFOC-20130216735

PATIENT
  Age: 74 Year
  Sex: Male
  Weight: 77.11 kg

DRUGS (29)
  1. XARELTO [Suspect]
     Indication: CEREBROVASCULAR ACCIDENT PROPHYLAXIS
     Route: 048
     Dates: start: 20130117, end: 20130313
  2. XARELTO [Suspect]
     Indication: ATRIAL FIBRILLATION
     Route: 048
     Dates: start: 20130117, end: 20130313
  3. BENADRYL [Concomitant]
     Indication: NASOPHARYNGITIS
     Route: 065
  4. STALEVO [Concomitant]
     Indication: PARKINSON^S DISEASE
     Route: 065
  5. AZILECT [Concomitant]
     Indication: PARKINSON^S DISEASE
     Route: 065
  6. SINEMET [Concomitant]
     Indication: PARKINSON^S DISEASE
     Route: 065
  7. FLOMAX [Concomitant]
     Indication: BENIGN PROSTATIC HYPERPLASIA
     Route: 065
  8. LASIX [Concomitant]
     Route: 065
  9. LASIX [Concomitant]
     Route: 065
  10. AMIODARONE [Concomitant]
     Indication: ATRIAL FIBRILLATION
     Dosage: 5 DAYS PER WEEK
     Route: 065
  11. FENTANYL [Concomitant]
     Route: 062
  12. LYRICA [Concomitant]
     Indication: NEUROPATHY PERIPHERAL
     Route: 062
  13. HYDROMORPHONE [Concomitant]
     Route: 065
  14. METHOCARBAMOL [Concomitant]
     Indication: BREAKTHROUGH PAIN
     Dosage: ONCE IN A WHILE
     Route: 065
  15. NORVASC [Concomitant]
     Route: 065
  16. AMLODIPINE [Concomitant]
     Route: 065
  17. OMEPRAZOLE [Concomitant]
     Route: 065
  18. CARBIDOPA/LEVODOPA [Concomitant]
     Dosage: 25/100 TABLET
     Route: 065
  19. LACTULOSE [Concomitant]
     Route: 065
  20. LANTUS SOLOSTAR [Concomitant]
     Dosage: 100 UNITS
     Route: 065
  21. CRESTOR [Concomitant]
     Route: 065
  22. TAMSULOSIN HYDROCHLORIDE [Concomitant]
     Route: 065
  23. VERAMYST [Concomitant]
     Route: 065
  24. NOVOLOG [Concomitant]
     Dosage: 100 UNITS
     Route: 065
  25. ZETIA [Concomitant]
     Route: 065
  26. NITROSTAT [Concomitant]
     Route: 065
  27. CLARITHROMYCIN [Concomitant]
     Route: 065
  28. CLINDAMYCIN [Concomitant]
     Route: 065
  29. CLINDAMYCIN HYDROCHLORIDE [Concomitant]
     Route: 065

REACTIONS (5)
  - Anaemia [Recovered/Resolved]
  - Nausea [Recovered/Resolved]
  - Haemorrhage [Unknown]
  - Rash [Recovered/Resolved]
  - Nasopharyngitis [Unknown]
